FAERS Safety Report 19755060 (Version 3)
Quarter: 2021Q3

REPORT INFORMATION
  Report Type: Spontaneous
  Country: US (occurrence: US)
  Receive Date: 20210827
  Receipt Date: 20210909
  Transmission Date: 20211014
  Serious: No
  Sender: FDA-Public Use
  Company Number: NVSC2021US192808

PATIENT
  Sex: Female

DRUGS (2)
  1. XIIDRA [Suspect]
     Active Substance: LIFITEGRAST
     Dosage: UNK
     Route: 065
  2. XIIDRA [Suspect]
     Active Substance: LIFITEGRAST
     Indication: PRODUCT USED FOR UNKNOWN INDICATION
     Dosage: 5 %, QD
     Route: 065

REACTIONS (11)
  - Headache [Unknown]
  - Nausea [Unknown]
  - Dizziness [Unknown]
  - Eye irritation [Unknown]
  - Dysgeusia [Unknown]
  - Vision blurred [Unknown]
  - Decreased appetite [Unknown]
  - Malaise [Unknown]
  - Pruritus [Unknown]
  - Pyrexia [Unknown]
  - Eye pain [Unknown]
